FAERS Safety Report 9002303 (Version 1)
Quarter: 2012Q4

REPORT INFORMATION
  Report Type: Spontaneous
  Country: US (occurrence: None)
  Receive Date: 20121204
  Receipt Date: 20121204
  Transmission Date: 20130627
  Serious: No
  Sender: FDA-Public Use
  Company Number: 2012-00169

PATIENT
  Age: 54 Year
  Sex: Male

DRUGS (2)
  1. ZICAM COLD REMEDY RAPIDMELTS [Suspect]
     Indication: COLD
     Dosage: 1 rapidmelt every 32 hours
     Dates: start: 20120930, end: 20121008
  2. FLUTICASONE [Concomitant]

REACTIONS (2)
  - Anosmia [None]
  - Hypogeusia [None]
